FAERS Safety Report 16883883 (Version 3)
Quarter: 2019Q4

REPORT INFORMATION
  Report Type: Spontaneous
  Country: US (occurrence: US)
  Receive Date: 20191004
  Receipt Date: 20191218
  Transmission Date: 20200122
  Serious: Yes (Other)
  Sender: FDA-Public Use
  Company Number: US-SUN PHARMACEUTICAL INDUSTRIES LTD-2019R1-222581

PATIENT
  Sex: Female

DRUGS (3)
  1. ORENITRAM [Concomitant]
     Active Substance: TREPROSTINIL
     Indication: PRODUCT USED FOR UNKNOWN INDICATION
     Dosage: 3 MILLIGRAM, TID, DOSE  LOWERED FROM 3 MG THREE TIMES A DAY TO 2 MG THREE TIMES A DAY
     Route: 065
  2. AMBRISENTAN [Suspect]
     Active Substance: AMBRISENTAN
     Indication: PRODUCT USED FOR UNKNOWN INDICATION
     Dosage: 10 MILLIGRAM, QD
     Route: 048
     Dates: start: 20190828
  3. ORENITRAM [Concomitant]
     Active Substance: TREPROSTINIL
     Dosage: 2 MILLIGRAM, TID
     Route: 065

REACTIONS (4)
  - Chest discomfort [Unknown]
  - Headache [Unknown]
  - Angina pectoris [Unknown]
  - Dyspnoea [Unknown]

NARRATIVE: CASE EVENT DATE: 2019
